FAERS Safety Report 21537630 (Version 1)
Quarter: 2022Q4

REPORT INFORMATION
  Report Type: Spontaneous
  Country: US (occurrence: US)
  Receive Date: 20221101
  Receipt Date: 20221101
  Transmission Date: 20230112
  Serious: No
  Sender: FDA-Public Use
  Company Number: US-SA-SAC20221028001283

PATIENT
  Sex: Female

DRUGS (1)
  1. AUBAGIO [Suspect]
     Active Substance: TERIFLUNOMIDE
     Indication: Multiple sclerosis
     Dosage: 1 DF, QD
     Route: 048

REACTIONS (6)
  - Dehydration [Unknown]
  - Pruritus [Unknown]
  - Asthenia [Unknown]
  - Neuralgia [Unknown]
  - Muscle spasms [Unknown]
  - Fatigue [Unknown]
